FAERS Safety Report 8979690 (Version 1)
Quarter: 2012Q4

REPORT INFORMATION
  Report Type: 
  Country: BE (occurrence: BE)
  Receive Date: 20121221
  Receipt Date: 20121221
  Transmission Date: 20130627
  Serious: Yes (Hospitalization)
  Sender: FDA-Public Use
  Company Number: BE-JNJFOC-20121210391

PATIENT
  Sex: Female

DRUGS (3)
  1. ZYRTEC [Suspect]
     Route: 048
  2. ZYRTEC [Suspect]
     Indication: PRODUCT USED FOR UNKNOWN INDICATION
     Dosage: 80 mg (not sure)
     Route: 048
  3. ZOLPIDEM [Concomitant]
     Dosage: 30 TABLETS OF 10 MG ZOLPIDEM PER DAY
     Route: 048

REACTIONS (3)
  - Intentional overdose [Recovered/Resolved]
  - Depressed level of consciousness [Recovered/Resolved]
  - Vomiting [Recovered/Resolved]
